FAERS Safety Report 20944898 (Version 2)
Quarter: 2022Q2

REPORT INFORMATION
  Report Type: Spontaneous
  Country: KZ (occurrence: KZ)
  Receive Date: 20220610
  Receipt Date: 20220614
  Transmission Date: 20220721
  Serious: Yes (Other)
  Sender: FDA-Public Use
  Company Number: KZ-Ipsen Biopharmaceuticals, Inc.-2022-15422

PATIENT
  Age: 35 Year
  Sex: Female

DRUGS (2)
  1. DYSPORT [Suspect]
     Active Substance: ABOBOTULINUMTOXINA
     Indication: Hyperhidrosis
     Dosage: 200 IU (100 IU INTO EACH ARMPIT)
     Route: 058
     Dates: start: 2021, end: 2021
  2. ACNECUTAN [Concomitant]
     Indication: Acne

REACTIONS (2)
  - Therapeutic response shortened [Unknown]
  - Incorrect route of product administration [Unknown]

NARRATIVE: CASE EVENT DATE: 20210101
